FAERS Safety Report 6407524-6 (Version None)
Quarter: 2009Q4

REPORT INFORMATION
  Report Type: 
  Country: None (occurrence: None)
  Receive Date: 20091020
  Receipt Date: 20091008
  Transmission Date: 20100525
  Serious: Yes (Other)
  Sender: FDA-Public Use
  Company Number: AU-ELI_LILLY_AND_COMPANY-AU200908000747

PATIENT
  Age: 50 Year
  Sex: Male

DRUGS (3)
  1. CYMBALTA [Suspect]
     Indication: MAJOR DEPRESSION
     Dosage: 30 MG, UNKNOWN
     Route: 065
     Dates: start: 20081202, end: 20081208
  2. CYMBALTA [Suspect]
     Dosage: 60 MG, UNKNOWN
     Route: 065
     Dates: start: 20090101, end: 20090401
  3. CYMBALTA [Suspect]
     Dosage: 30 MG, UNKNOWN
     Route: 065
     Dates: start: 20090401, end: 20090415

REACTIONS (1)
  - HEPATITIS B [None]
